FAERS Safety Report 8165295-X (Version None)
Quarter: 2012Q1

REPORT INFORMATION
  Report Type: 
  Country: None (occurrence: None)
  Receive Date: 20120227
  Receipt Date: 20120216
  Transmission Date: 20120608
  Serious: No
  Sender: FDA-Public Use
  Company Number: US-JNJFOC-20120101562

PATIENT
  Sex: Female

DRUGS (2)
  1. DURAGESIC-100 [Suspect]
     Indication: PRODUCT USED FOR UNKNOWN INDICATION
     Route: 062
  2. DURAGESIC-100 [Suspect]
     Route: 062

REACTIONS (6)
  - INCORRECT DRUG ADMINISTRATION DURATION [None]
  - DRUG DOSE OMISSION [None]
  - HYPERSENSITIVITY [None]
  - DRUG EFFECT DECREASED [None]
  - PRODUCT QUALITY ISSUE [None]
  - ERYTHEMA [None]
